FAERS Safety Report 6254292-7 (Version None)
Quarter: 2009Q3

REPORT INFORMATION
  Report Type: 
  Country: None (occurrence: None)
  Receive Date: 20090702
  Receipt Date: 20090622
  Transmission Date: 20100115
  Serious: Yes (Other)
  Sender: FDA-Public Use
  Company Number: JP-ABBOTT-09P-087-0582859-00

PATIENT
  Age: 34 Year
  Sex: Female

DRUGS (3)
  1. SEVOFLURANE [Suspect]
     Indication: ANAESTHESIA
     Dosage: NOT REPORTED
  2. PROPOFOL [Suspect]
     Indication: ANAESTHESIA
     Dosage: NOT REPORTED
  3. OXYGEN [Concomitant]
     Indication: ANAESTHESIA
     Dosage: NOT REPORTED

REACTIONS (1)
  - HAEMORRHAGE [None]
